FAERS Safety Report 12612431 (Version 1)
Quarter: 2016Q3

REPORT INFORMATION
  Report Type: Spontaneous
  Country: US (occurrence: US)
  Receive Date: 20160801
  Receipt Date: 20160801
  Transmission Date: 20161109
  Serious: Yes (Death)
  Sender: FDA-Public Use
  Company Number: US-ACTELION-A-US2016-139842

PATIENT
  Age: 83 Year
  Sex: Female

DRUGS (4)
  1. TRACLEER [Suspect]
     Active Substance: BOSENTAN
     Indication: PULMONARY HYPERTENSION
     Dosage: 125 MG, BID
     Route: 048
  2. TREPROSTINIL DIOLAMIN [Concomitant]
     Active Substance: TREPROSTINIL DIOLAMINE
  3. TRACLEER [Suspect]
     Active Substance: BOSENTAN
     Dosage: UNK
     Route: 048
  4. RIOCIGUAT [Concomitant]
     Active Substance: RIOCIGUAT

REACTIONS (1)
  - Death [Fatal]
